APPROVED DRUG PRODUCT: MESALAMINE
Active Ingredient: MESALAMINE
Strength: 1GM
Dosage Form/Route: SUPPOSITORY;RECTAL
Application: A210509 | Product #001
Applicant: AMNEAL PHARMACEUTICALS LLC
Approved: Jan 2, 2020 | RLD: No | RS: No | Type: DISCN